FAERS Safety Report 6161767-8 (Version None)
Quarter: 2009Q2

REPORT INFORMATION
  Report Type: 
  Country: None (occurrence: None)
  Receive Date: 20090421
  Receipt Date: 20090417
  Transmission Date: 20091009
  Serious: Yes (Death, Hospitalization)
  Sender: FDA-Public Use
  Company Number: JP-BAYER-200910151BYL

PATIENT
  Age: 76 Year
  Sex: Male
  Weight: 65 kg

DRUGS (15)
  1. NEXAVAR [Suspect]
     Indication: RENAL CELL CARCINOMA STAGE IV
     Dosage: UNIT DOSE: 200 MG
     Route: 048
     Dates: start: 20081204, end: 20081219
  2. NEXAVAR [Suspect]
     Dosage: UNIT DOSE: 200 MG
     Route: 048
     Dates: start: 20090205
  3. NEXAVAR [Suspect]
     Route: 048
     Dates: end: 20090330
  4. DECADRON [Concomitant]
     Route: 048
     Dates: start: 20081204
  5. ZYLORIC [Concomitant]
     Route: 048
     Dates: start: 20081204
  6. SOLITA-T NO.1 [Concomitant]
     Route: 041
     Dates: start: 20081204, end: 20081209
  7. ASPIRIN [Concomitant]
     Route: 048
     Dates: start: 20081204
  8. LASIX [Concomitant]
     Route: 048
     Dates: start: 20081204
  9. PARIET [Concomitant]
     Route: 048
     Dates: start: 20081204
  10. ARGAMATE [Concomitant]
     Route: 048
     Dates: start: 20081205, end: 20081211
  11. 10 % GLUCOSE [Concomitant]
     Route: 041
     Dates: start: 20081210, end: 20081214
  12. FULCALIQ 1 [Concomitant]
     Route: 041
     Dates: start: 20081219, end: 20090106
  13. MEROPEN [Concomitant]
     Route: 041
     Dates: start: 20081220, end: 20081221
  14. LENDORMIN [Concomitant]
     Route: 048
     Dates: start: 20081223
  15. CLARITIN REDITABS [Concomitant]
     Route: 048
     Dates: start: 20081223, end: 20090105

REACTIONS (8)
  - ANOREXIA [None]
  - DIARRHOEA [None]
  - HYPERTENSION [None]
  - HYPOCALCAEMIA [None]
  - HYPOPHOSPHATAEMIA [None]
  - PLATELET COUNT DECREASED [None]
  - PYREXIA [None]
  - RENAL FAILURE [None]
